FAERS Safety Report 12928949 (Version 7)
Quarter: 2018Q3

REPORT INFORMATION
  Report Type: Report from Study
  Country: DE (occurrence: DE)
  Receive Date: 20161110
  Receipt Date: 20180802
  Transmission Date: 20181010
  Serious: Yes (Other)
  Sender: FDA-Public Use
  Company Number: PHHY2016DE152564

PATIENT
  Age: 56 Year
  Sex: Female
  Weight: 100 kg

DRUGS (28)
  1. COSENTYX [Suspect]
     Active Substance: SECUKINUMAB
     Dosage: 150 MG, PER APPLICATION
     Route: 065
     Dates: start: 20170526
  2. COSENTYX [Suspect]
     Active Substance: SECUKINUMAB
     Dosage: 150 MG, UNK
     Route: 065
  3. VOLTAREN RESINAT [Concomitant]
     Active Substance: DICLOFENAC
     Indication: OSTEOARTHRITIS
  4. METHOTREXATE. [Concomitant]
     Active Substance: METHOTREXATE
     Indication: ANKYLOSING SPONDYLITIS
     Dosage: 20 MG, QW
     Route: 058
     Dates: start: 201411, end: 20161024
  5. PANTOPRAZOLE [Concomitant]
     Active Substance: PANTOPRAZOLE
     Indication: PRODUCT USED FOR UNKNOWN INDICATION
     Dosage: 20 MG, QD (1?0?0)
     Route: 048
     Dates: start: 20151006
  6. TRAMADOL. [Concomitant]
     Active Substance: TRAMADOL
     Indication: PAIN
     Dosage: 50 MG, PRN (1?1?1)
     Route: 048
     Dates: start: 20170620
  7. COSENTYX [Suspect]
     Active Substance: SECUKINUMAB
     Dosage: 150 MG, PER APPLICATION
     Route: 065
     Dates: start: 20160830
  8. COSENTYX [Suspect]
     Active Substance: SECUKINUMAB
     Dosage: 150 MG, PER APPLICATION
     Route: 065
     Dates: start: 20161025
  9. FOLSAN [Concomitant]
     Active Substance: FOLIC ACID
     Indication: PROPHYLAXIS
     Dosage: 5 MG, QW2
     Route: 048
     Dates: start: 201411, end: 20161025
  10. JANUVIA [Concomitant]
     Active Substance: SITAGLIPTIN PHOSPHATE
     Dosage: 50 MG, QD
     Route: 048
  11. MILLIPRED [Concomitant]
     Active Substance: PREDNISOLONE
     Dosage: ALTERNATING DAILY  BETWEEN 5 MG AND 2.5 MG, QD QD
     Route: 048
     Dates: start: 20150430
  12. PANTOPRAZOLE [Concomitant]
     Active Substance: PANTOPRAZOLE
     Indication: PROPHYLAXIS AGAINST GASTROINTESTINAL ULCER
  13. COSENTYX [Suspect]
     Active Substance: SECUKINUMAB
     Indication: ANKYLOSING SPONDYLITIS
     Dosage: 150 MG, PER APPLICATION
     Route: 065
     Dates: start: 20160802
  14. NOVAMINSULFON [Concomitant]
     Active Substance: METAMIZOLE
     Indication: ANKYLOSING SPONDYLITIS
     Dosage: 20?30 DROPS, FOURTIMES
     Route: 048
     Dates: start: 20160520, end: 201703
  15. TRAMADOL. [Concomitant]
     Active Substance: TRAMADOL
     Dosage: 100 MG, PRN (1?1?1)
     Route: 048
     Dates: start: 20170627
  16. COSENTYX [Suspect]
     Active Substance: SECUKINUMAB
     Dosage: 150 MG, PER APPLICATION
     Route: 065
     Dates: start: 20160927
  17. JANUVIA [Concomitant]
     Active Substance: SITAGLIPTIN PHOSPHATE
     Indication: TYPE 2 DIABETES MELLITUS
     Dosage: 50 MG, QD (1?0?0)
     Route: 048
  18. PREDNISOLONE. [Concomitant]
     Active Substance: PREDNISOLONE
     Indication: ANKYLOSING SPONDYLITIS
     Dosage: 2.5 MG, QD
     Route: 048
     Dates: start: 20170501, end: 20170530
  19. MILLIPRED [Concomitant]
     Active Substance: PREDNISOLONE
     Indication: ANKYLOSING SPONDYLITIS
     Dosage: ALTERNATING DAILY  BETWEEN 5 MG AND 2.5 MG, QD QD
     Route: 048
     Dates: start: 20150430, end: 20170430
  20. NOVAMINSULFON [Concomitant]
     Active Substance: METAMIZOLE
     Dosage: 20?30 GTT, TID
     Route: 048
     Dates: start: 20160520
  21. VITAMIN D [Concomitant]
     Active Substance: CHOLECALCIFEROL
     Indication: OSTEOPOROSIS PROPHYLAXIS
     Dosage: 800?1000 IU, PER DAY
     Route: 048
     Dates: start: 20150623
  22. FOLSAN [Concomitant]
     Active Substance: FOLIC ACID
     Indication: PRODUCT USED FOR UNKNOWN INDICATION
     Dosage: 5 MG, QW2
     Route: 048
     Dates: start: 201411, end: 20161025
  23. VOLTAREN RESINAT [Concomitant]
     Active Substance: DICLOFENAC
     Indication: ANKYLOSING SPONDYLITIS
     Dosage: AS NEEDED (1?2X 1 DF)
     Route: 048
     Dates: start: 20160202
  24. VITAMIN D [Concomitant]
     Active Substance: CHOLECALCIFEROL
     Dosage: 800?1000 IU, PER DAY
     Route: 048
  25. CALCIUM [Concomitant]
     Active Substance: CALCIUM
     Indication: OSTEOPOROSIS PROPHYLAXIS
     Dosage: 500 MG, QD 1X DAILY
     Dates: start: 20150623
  26. TILIDIN [Concomitant]
     Active Substance: NALOXONE HYDROCHLORIDE\TILIDINE HYDROCHLORIDE
     Indication: ANKYLOSING SPONDYLITIS
     Dosage: 50 MG, QD (1?2 TIMES)
     Route: 048
     Dates: start: 20170410
  27. CALCIUM [Concomitant]
     Active Substance: CALCIUM
     Dosage: 500 MG, 1X DAILY
     Dates: start: 20150623
  28. METFORMIN [Concomitant]
     Active Substance: METFORMIN HYDROCHLORIDE
     Indication: TYPE 2 DIABETES MELLITUS
     Dosage: 850 MG, (1?0?0)
     Route: 048
     Dates: start: 20170616

REACTIONS (2)
  - Neuropathic ulcer [Not Recovered/Not Resolved]
  - Hypertension [Not Recovered/Not Resolved]

NARRATIVE: CASE EVENT DATE: 201608
